FAERS Safety Report 16833858 (Version 1)
Quarter: 2019Q3

REPORT INFORMATION
  Report Type: Spontaneous
  Country: US (occurrence: US)
  Receive Date: 20190920
  Receipt Date: 20190920
  Transmission Date: 20191005
  Serious: No
  Sender: FDA-Public Use
  Company Number: US-PFIZER INC-2019405771

PATIENT
  Age: 43 Year

DRUGS (2)
  1. LYRICA [Suspect]
     Active Substance: PREGABALIN
     Dosage: 300 MG, 3X/DAY
  2. LYRICA [Suspect]
     Active Substance: PREGABALIN
     Dosage: UNK (ONCE OR TWICE A DAY)

REACTIONS (4)
  - Headache [Unknown]
  - Overdose [Unknown]
  - Intentional product use issue [Unknown]
  - Thinking abnormal [Unknown]
